FAERS Safety Report 6046889-4 (Version None)
Quarter: 2009Q1

REPORT INFORMATION
  Report Type: 
  Country: None (occurrence: None)
  Receive Date: 20090122
  Receipt Date: 20090113
  Transmission Date: 20090719
  Serious: Yes (Other)
  Sender: FDA-Public Use
  Company Number: B0550895A

PATIENT
  Age: 46 Year
  Sex: Female

DRUGS (1)
  1. AMOXICILLIN + CLAVULANATE POTASSIUM [Suspect]
     Indication: INFECTION
     Dosage: 13125MG CUMULATIVE DOSE
     Route: 048

REACTIONS (8)
  - ACUTE HEPATIC FAILURE [None]
  - HEPATITIS [None]
  - HEPATOTOXICITY [None]
  - JAUNDICE [None]
  - MALAISE [None]
  - PYREXIA [None]
  - RASH [None]
  - SUBACUTE HEPATIC FAILURE [None]
